FAERS Safety Report 5598950-6 (Version None)
Quarter: 2008Q1

REPORT INFORMATION
  Report Type: 
  Country: None (occurrence: None)
  Receive Date: 20080122
  Receipt Date: 20080116
  Transmission Date: 20080703
  Serious: Yes (Hospitalization)
  Sender: FDA-Public Use
  Company Number: GB-ROCHE-541812

PATIENT
  Age: 32 Year
  Sex: Male
  Weight: 130.6 kg

DRUGS (4)
  1. ORLISTAT [Suspect]
     Indication: OBESITY
     Route: 048
     Dates: start: 20070612, end: 20080112
  2. RAMIPRIL [Concomitant]
     Indication: HYPERTENSION
     Dosage: DATE STOPPED: TEMPORARILY STOPPED LAST WEEK
     Route: 048
     Dates: end: 20080101
  3. 1 CONCOMITANT DRUG [Concomitant]
     Indication: HYPERTENSION
     Dosage: DRUG NAME: BENDROFLOURAZIDE, DATE STOPPED: TEMPORARILY STOPPED LAST WEEK
     Route: 048
     Dates: end: 20080101
  4. LANSOPRAZOLE [Concomitant]
     Dosage: DATE STOPPED: TEMPORARILY STOPPED LAST WEEK
     Route: 048
     Dates: end: 20080101

REACTIONS (4)
  - CONTUSION [None]
  - FALL [None]
  - SKIN INFECTION [None]
  - UPPER LIMB FRACTURE [None]
